FAERS Safety Report 18512539 (Version 1)
Quarter: 2020Q4

REPORT INFORMATION
  Report Type: Spontaneous
  Country: US (occurrence: US)
  Receive Date: 20201117
  Receipt Date: 20201117
  Transmission Date: 20210114
  Serious: Yes (Death, Other)
  Sender: FDA-Public Use
  Company Number: US-FRESENIUS KABI-FK202012138

PATIENT
  Age: 62 Year
  Sex: Female

DRUGS (5)
  1. CARBOPLATIN. [Concomitant]
     Active Substance: CARBOPLATIN
     Indication: ENDOMETRIAL ADENOCARCINOMA
     Dosage: EVERY 3 WEEKS
     Route: 065
     Dates: start: 201809
  2. APIXABAN [Concomitant]
     Active Substance: APIXABAN
     Indication: VENOUS THROMBOSIS
     Route: 065
     Dates: end: 201908
  3. PERTUZUMAB. [Suspect]
     Active Substance: PERTUZUMAB
     Indication: ENDOMETRIAL ADENOCARCINOMA
     Route: 065
  4. PACLITAXEL (MANUFACTURER UNKNOWN) [Suspect]
     Active Substance: PACLITAXEL
     Indication: ENDOMETRIAL ADENOCARCINOMA
     Route: 065
     Dates: start: 2019
  5. TRASTUZUMAB. [Suspect]
     Active Substance: TRASTUZUMAB
     Indication: ENDOMETRIAL ADENOCARCINOMA
     Dosage: EVERY 3 WEEKS
     Route: 065
     Dates: start: 201809

REACTIONS (3)
  - Cough [Unknown]
  - Dysphonia [Unknown]
  - Paralysis recurrent laryngeal nerve [Unknown]

NARRATIVE: CASE EVENT DATE: 2019
